FAERS Safety Report 26120827 (Version 1)
Quarter: 2025Q4

REPORT INFORMATION
  Report Type: Spontaneous
  Country: GB (occurrence: GB)
  Receive Date: 20251204
  Receipt Date: 20251204
  Transmission Date: 20260119
  Serious: Yes (Other)
  Sender: DR REDDYS
  Company Number: None

PATIENT
  Age: 23 Year

DRUGS (18)
  1. MONTELUKAST [Suspect]
     Active Substance: MONTELUKAST
     Indication: Product used for unknown indication
     Dosage: AT NIGHT
  2. QUETIAPINE [Concomitant]
     Active Substance: QUETIAPINE
     Indication: Product used for unknown indication
  3. DOCUSATE [Concomitant]
     Active Substance: DOCUSATE
     Indication: Product used for unknown indication
     Dosage: 100 MG CAPSULES TAKE TWO BD -
  4. LAMOTRIGINE [Concomitant]
     Active Substance: LAMOTRIGINE
     Indication: Product used for unknown indication
     Dosage: 200 MG TABLETS ONE BD- Y LAMOTRIGINE
  5. LAMOTRIGINE [Concomitant]
     Active Substance: LAMOTRIGINE
     Dosage: 50 MG TABLETS ONE TO BE TAKEN EACH DAY AT NIGHT-
  6. BECLOMETHASONE DIPROPIONATE\FORMOTEROL FUMARATE\GLYCOPYRROLATE [Concomitant]
     Active Substance: BECLOMETHASONE DIPROPIONATE\FORMOTEROL FUMARATE\GLYCOPYRROLATE
     Indication: Product used for unknown indication
     Dosage: TRIMBOW 172 / 5 / 9 MICROGRAMS /?DOSE INHALER TWO PUFFS TO BE INHALED TWICE A DAY -
  7. NICOTINE [Concomitant]
     Active Substance: NICOTINE
     Indication: Product used for unknown indication
     Dosage: 1 MG / DOSE MOUTHSPRAY FRESHMINT TO BE USED AS DIRECTED-
  8. FEXOFENADINE [Concomitant]
     Active Substance: FEXOFENADINE HYDROCHLORIDE
     Indication: Product used for unknown indication
     Dosage: 180 MG TABLETS ONE TO BE TAKEN EACH DAY-
  9. FOLIC ACID [Concomitant]
     Active Substance: FOLIC ACID
     Indication: Product used for unknown indication
     Dosage: 5 MG TABLETS ONE TO BE TAKEN EACH DAY-
  10. Hux-D3 [Concomitant]
     Indication: Product used for unknown indication
     Dosage: 20,000 UNIT CAPSULES TAKE ONE CAPSULE ON THE SAME DAY EACH MONTH.
  11. SERTRALINE [Concomitant]
     Active Substance: SERTRALINE HYDROCHLORIDE
     Indication: Product used for unknown indication
     Dosage: 100 MG TABLETS TWO TABLETS ONCE PER DAY- NOT TAKING AND HASN^T BEEN FOR OVER A YEAR
  12. ALBUTEROL [Concomitant]
     Active Substance: ALBUTEROL
     Indication: Product used for unknown indication
     Dosage: 100 MICROGRAMS / DOSE INHALER CFC FREE TWO PUFFS AS REQUIRED-
  13. NICOTINE [Concomitant]
     Active Substance: NICOTINE
     Indication: Product used for unknown indication
     Dosage: 21 MG / 24 HOURS TRANSDERMAL PATCHES APPLY ONE PATCH EACH DAY AS DIRECTED
  14. CLOBAZAM [Concomitant]
     Active Substance: CLOBAZAM
     Indication: Product used for unknown indication
     Dosage: 10 MG TABLETS ONE TO BE TAKEN THREE TIMES A DAY-
  15. FLUTICASONE FUROATE [Concomitant]
     Active Substance: FLUTICASONE FUROATE
     Indication: Product used for unknown indication
     Dosage: 27.5 MICROGRAMS / DOSE NASAL SPRAY ONE SPRAY TO BE USED IN EACH NOSTRIL ONCE A DAY,
  16. FERROUS FUMARATE [Concomitant]
     Active Substance: FERROUS FUMARATE
     Indication: Product used for unknown indication
     Dosage: 210 MG TABLETS ONE TO BE TAKEN EACH DAY
  17. LORAZEPAM [Concomitant]
     Active Substance: LORAZEPAM
     Indication: Muscle spasms
  18. LORAZEPAM [Concomitant]
     Active Substance: LORAZEPAM
     Indication: Throat tightness

REACTIONS (1)
  - Bipolar disorder [Unknown]
